FAERS Safety Report 16827834 (Version 1)
Quarter: 2019Q3

REPORT INFORMATION
  Report Type: Spontaneous
  Country: US (occurrence: US)
  Receive Date: 20190919
  Receipt Date: 20190919
  Transmission Date: 20191005
  Serious: Yes (Hospitalization)
  Sender: FDA-Public Use
  Company Number: US-CELGENEUS-USA-20190905059

PATIENT
  Age: 85 Year
  Sex: Female

DRUGS (2)
  1. REVLIMID [Suspect]
     Active Substance: LENALIDOMIDE
     Indication: CHRONIC LYMPHOCYTIC LEUKAEMIA
     Dosage: 25 MILLIGRAM
     Route: 048
     Dates: start: 20190823
  2. REVLIMID [Suspect]
     Active Substance: LENALIDOMIDE
     Indication: OFF LABEL USE
     Dosage: 10 MILLIGRAM
     Route: 048
     Dates: start: 201909

REACTIONS (3)
  - Fall [Recovered/Resolved]
  - Anaemia [Recovered/Resolved]
  - Syncope [Recovered/Resolved]

NARRATIVE: CASE EVENT DATE: 20190902
